FAERS Safety Report 9968505 (Version 1)
Quarter: 2014Q1

REPORT INFORMATION
  Report Type: Spontaneous
  Country: US (occurrence: US)
  Receive Date: 20140306
  Receipt Date: 20140306
  Transmission Date: 20141002
  Serious: No
  Sender: FDA-Public Use
  Company Number: US-ABBVIE-13P-163-1140640-00

PATIENT
  Age: 24 Year
  Sex: Male
  Weight: 54.03 kg

DRUGS (2)
  1. HUMIRA [Suspect]
     Indication: CROHN^S DISEASE
     Dates: start: 2009
  2. HUMIRA [Suspect]
     Dates: start: 201308

REACTIONS (1)
  - Crohn^s disease [Unknown]
